FAERS Safety Report 15209479 (Version 2)
Quarter: 2018Q3

REPORT INFORMATION
  Report Type: Spontaneous
  Country: US (occurrence: US)
  Receive Date: 20180727
  Receipt Date: 20180927
  Transmission Date: 20181010
  Serious: Yes (Death)
  Sender: FDA-Public Use
  Company Number: US-INDIVIOR LIMITED-INDV-112661-2018

PATIENT
  Sex: Female

DRUGS (2)
  1. SUBOXONE [Suspect]
     Active Substance: BUPRENORPHINE HYDROCHLORIDE\NALOXONE HYDROCHLORIDE
     Indication: PRODUCT USED FOR UNKNOWN INDICATION
     Dosage: 8 MG, BID
     Route: 060
     Dates: start: 20180122, end: 20180719
  2. LYRICA [Concomitant]
     Active Substance: PREGABALIN
     Indication: RESTLESS LEGS SYNDROME
     Dosage: 350 MG TWO PER DAY
     Route: 048
     Dates: start: 2015, end: 20180711

REACTIONS (4)
  - Restless legs syndrome [Unknown]
  - Condition aggravated [Unknown]
  - Inappropriate schedule of drug administration [Recovered/Resolved]
  - Death [Fatal]

NARRATIVE: CASE EVENT DATE: 2018
